FAERS Safety Report 13415990 (Version 3)
Quarter: 2017Q3

REPORT INFORMATION
  Report Type: Spontaneous
  Country: US (occurrence: US)
  Receive Date: 20170407
  Receipt Date: 20170803
  Transmission Date: 20171127
  Serious: Yes (Death, Hospitalization, Other)
  Sender: FDA-Public Use
  Company Number: US-PFIZER INC-2017135902

PATIENT
  Age: 75 Year
  Sex: Female
  Weight: 52.62 kg

DRUGS (14)
  1. LETROZOLE. [Concomitant]
     Active Substance: LETROZOLE
     Indication: NEOPLASM MALIGNANT
     Dosage: 2.5 MG, 1X/DAY (AT NIGHT/EVEN DURING THE OFF WEEK OF IBRANCE)
     Route: 048
     Dates: start: 2016, end: 20170422
  2. AMIODARONE [Concomitant]
     Active Substance: AMIODARONE
     Indication: CARDIAC MURMUR
     Dosage: 100 MG, 1X/DAY
     Route: 048
  3. BUDESONIDE. [Concomitant]
     Active Substance: BUDESONIDE
     Indication: DYSPNOEA
     Dosage: 0.5 MG, AS NEEDED (INHALATION)
     Route: 055
  4. REGLAN [Concomitant]
     Active Substance: METOCLOPRAMIDE HYDROCHLORIDE
     Indication: ABDOMINAL DISCOMFORT
     Dosage: 10 MG, 2X/DAY
     Route: 048
  5. TYLENOL [Concomitant]
     Active Substance: ACETAMINOPHEN
     Indication: HEADACHE
     Dosage: 325 MG, AS NEEDED
     Route: 048
  6. IBRANCE [Suspect]
     Active Substance: PALBOCICLIB
     Dosage: 125 MG, CYCLIC (FOR 21 DAYS AND THEN OFF FOR 7 DAYS)
     Route: 048
  7. CITALOPRAM [Concomitant]
     Active Substance: CITALOPRAM HYDROBROMIDE
     Dosage: 20 MG, 1X/DAY
     Route: 048
     Dates: end: 20170422
  8. IBRANCE [Suspect]
     Active Substance: PALBOCICLIB
     Dosage: UNK, 1X/DAY
     Dates: start: 2016, end: 201704
  9. METFORMIN [Concomitant]
     Active Substance: METFORMIN HYDROCHLORIDE
     Indication: BLOOD GLUCOSE ABNORMAL
  10. GLIMEPIRIDE. [Concomitant]
     Active Substance: GLIMEPIRIDE
     Dosage: 1 MG, 1X/DAY (WITH BREAKFAST)
     Route: 048
     Dates: end: 20170422
  11. ATORVASTATIN [Concomitant]
     Active Substance: ATORVASTATIN
     Indication: BLOOD CHOLESTEROL ABNORMAL
     Dosage: 40 MG, 1X/DAY (AT NIGHT)
     Dates: end: 20170422
  12. TYLENOL [Concomitant]
     Active Substance: ACETAMINOPHEN
     Indication: PAIN
  13. IBRANCE [Suspect]
     Active Substance: PALBOCICLIB
     Indication: BREAST CANCER METASTATIC
     Dosage: 125 MG, 1X/DAY
     Route: 048
     Dates: start: 20161006
  14. METFORMIN [Concomitant]
     Active Substance: METFORMIN HYDROCHLORIDE
     Indication: DIABETES MELLITUS
     Dosage: 500 MG, 2X/DAY
     Route: 048
     Dates: end: 20170422

REACTIONS (6)
  - Urinary tract infection [Recovered/Resolved]
  - Weight decreased [Unknown]
  - Pleural effusion [Unknown]
  - Dysphagia [Recovered/Resolved]
  - Neoplasm progression [Fatal]
  - Dyspnoea [Unknown]

NARRATIVE: CASE EVENT DATE: 20170319
